FAERS Safety Report 23190259 (Version 3)
Quarter: 2023Q4

REPORT INFORMATION
  Report Type: Spontaneous
  Country: JP (occurrence: JP)
  Receive Date: 20231116
  Receipt Date: 20231129
  Transmission Date: 20240109
  Serious: Yes (Other)
  Sender: FDA-Public Use
  Company Number: JP-UNITED THERAPEUTICS-UNT-2023-030692

PATIENT
  Age: 58 Year
  Sex: Female

DRUGS (2)
  1. TYVASO [Suspect]
     Active Substance: TREPROSTINIL
     Indication: Interstitial lung disease
     Dosage: UNK
     Dates: start: 20231019, end: 202310
  2. TYVASO [Suspect]
     Active Substance: TREPROSTINIL
     Indication: Dermatomyositis

REACTIONS (4)
  - Interstitial lung disease [Unknown]
  - Dermatomyositis [Unknown]
  - Cough [Unknown]
  - Off label use [Unknown]

NARRATIVE: CASE EVENT DATE: 20230101
